FAERS Safety Report 6499030-8 (Version None)
Quarter: 2009Q4

REPORT INFORMATION
  Report Type: 
  Country: None (occurrence: None)
  Receive Date: 20091215
  Receipt Date: 20091207
  Transmission Date: 20100525
  Serious: Yes (Other)
  Sender: FDA-Public Use
  Company Number: US-ALLERGAN-0916855US

PATIENT
  Age: 65 Year
  Sex: Male
  Weight: 86.2 kg

DRUGS (9)
  1. LUMIGAN [Suspect]
     Indication: GLAUCOMA
  2. ASPIRIN [Concomitant]
     Dosage: UNK
  3. HYDROCHLOROTHIAZIDE [Concomitant]
     Dosage: UNK
  4. LISINOPRIL [Concomitant]
     Dosage: UNK
  5. SIMVASTATIN [Concomitant]
     Dosage: UNK
  6. CIALIS [Concomitant]
     Dosage: UNK
  7. TIMOLOL MALEATE [Concomitant]
     Indication: GLAUCOMA
  8. VITAMINS [Concomitant]
     Dosage: UNK
  9. WARFARIN SODIUM [Concomitant]
     Dosage: UNK

REACTIONS (1)
  - PROSTATE CANCER [None]
